FAERS Safety Report 4650494-1 (Version None)
Quarter: 2005Q2

REPORT INFORMATION
  Report Type: 
  Country: None (occurrence: None)
  Receive Date: 20050502
  Receipt Date: 20050117
  Transmission Date: 20051028
  Serious: Yes (Hospitalization, Other)
  Sender: FDA-Public Use
  Company Number: US-MERCK-0501USA02880

PATIENT
  Age: 49 Year
  Sex: Male
  Weight: 75 kg

DRUGS (5)
  1. VIOXX [Suspect]
     Indication: MONARTHRITIS
     Route: 048
     Dates: start: 19991008, end: 20040901
  2. VIOXX [Suspect]
     Route: 048
     Dates: start: 19991008, end: 20040901
  3. COZAAR [Concomitant]
     Indication: HYPERTENSION
     Route: 065
  4. ATENOLOL [Concomitant]
     Route: 065
  5. PRILOSEC [Concomitant]
     Route: 065

REACTIONS (19)
  - ACUTE MYOCARDIAL INFARCTION [None]
  - ANGINA PECTORIS [None]
  - AORTIC STENOSIS [None]
  - ARTERIOSCLEROSIS [None]
  - CAROTID BRUIT [None]
  - CORONARY ARTERY DISEASE [None]
  - DERMAL CYST [None]
  - EMOTIONAL DISTRESS [None]
  - HAEMORRHOIDS [None]
  - HYPERLIPIDAEMIA [None]
  - INTERMITTENT CLAUDICATION [None]
  - LEUKOCYTOSIS [None]
  - OCCULT BLOOD POSITIVE [None]
  - PARONYCHIA [None]
  - PERIPHERAL VASCULAR DISORDER [None]
  - RENAL IMPAIRMENT [None]
  - UPPER RESPIRATORY TRACT CONGESTION [None]
  - UPPER RESPIRATORY TRACT INFECTION [None]
  - VENTRICULAR HYPOKINESIA [None]
